FAERS Safety Report 9129114 (Version 1)
Quarter: 2013Q1

REPORT INFORMATION
  Report Type: Spontaneous
  Country: NL (occurrence: NL)
  Receive Date: 20130125
  Receipt Date: 20130125
  Transmission Date: 20140127
  Serious: Yes (Life-Threatening, Hospitalization)
  Sender: FDA-Public Use
  Company Number: NL-TEVA-381725ISR

PATIENT
  Age: 28 Year
  Sex: Female
  Weight: 68 kg

DRUGS (1)
  1. FAMCICLOVIR [Suspect]
     Indication: ORAL HERPES
     Dosage: 1000 MILLIGRAM DAILY; 1 KEER PER DAG 2 STUK(S)
     Route: 048
     Dates: start: 20121226, end: 20121226

REACTIONS (1)
  - Angioedema [Recovered/Resolved]
